FAERS Safety Report 7261459-8 (Version None)
Quarter: 2011Q1

REPORT INFORMATION
  Report Type: 
  Country: None (occurrence: None)
  Receive Date: 20110130
  Receipt Date: 20100921
  Transmission Date: 20110831
  Serious: No
  Sender: FDA-Public Use
  Company Number: US-ABBOTT-10P-163-0672436-00

PATIENT
  Age: 48 Year
  Sex: Female

DRUGS (7)
  1. HUMIRA [Suspect]
     Indication: CROHN'S DISEASE
     Dates: start: 20100910
  2. CIPRO [Concomitant]
     Indication: CROHN'S DISEASE
  3. FLAGYL [Concomitant]
     Indication: CROHN'S DISEASE
  4. ASACOL [Concomitant]
     Indication: PRODUCT USED FOR UNKNOWN INDICATION
  5. IRON [Concomitant]
     Indication: SUPPLEMENTATION THERAPY
  6. SYNTHROID [Concomitant]
     Indication: PRODUCT USED FOR UNKNOWN INDICATION
  7. IMITREX [Concomitant]
     Indication: MIGRAINE

REACTIONS (3)
  - TINEA INFECTION [None]
  - RASH PRURITIC [None]
  - RASH ERYTHEMATOUS [None]
